FAERS Safety Report 5423072-4 (Version None)
Quarter: 2007Q3

REPORT INFORMATION
  Report Type: 
  Country: None (occurrence: None)
  Receive Date: 20070821
  Receipt Date: 20070810
  Transmission Date: 20080115
  Serious: Yes (Other)
  Sender: FDA-Public Use
  Company Number: 236547K07USA

PATIENT
  Age: 31 Year
  Sex: Female
  Weight: 66.6788 kg

DRUGS (1)
  1. REBIF [Suspect]
     Indication: MULTIPLE SCLEROSIS
     Dosage: 44 MCG, 3 IN 1 WEEKS, SUBCUTANEOUS
     Route: 058
     Dates: start: 20060720, end: 20061026

REACTIONS (3)
  - RHEUMATOID ARTHRITIS [None]
  - SYNOVITIS [None]
  - WEIGHT INCREASED [None]
